FAERS Safety Report 10220035 (Version 1)
Quarter: 2014Q2

REPORT INFORMATION
  Report Type: Spontaneous
  Country: PE (occurrence: PE)
  Receive Date: 20140605
  Receipt Date: 20140605
  Transmission Date: 20141212
  Serious: Yes (Life-Threatening, Hospitalization)
  Sender: FDA-Public Use
  Company Number: PE-B.I. PHARMACEUTICALS,INC./RIDGEFIELD-2014-BI-25131PB

PATIENT
  Age: 56 Year
  Sex: Male

DRUGS (4)
  1. PRADAXA [Suspect]
     Indication: CEREBROVASCULAR ACCIDENT PROPHYLAXIS
     Dosage: 300 MG
     Route: 048
     Dates: start: 2013, end: 201406
  2. PRADAXA [Suspect]
     Indication: EMBOLISM
  3. PRADAXA [Suspect]
     Indication: ATRIAL FIBRILLATION
  4. WARFARIN [Concomitant]
     Indication: HYPERTENSION
     Route: 048
     Dates: start: 2006, end: 2013

REACTIONS (1)
  - Thrombosis mesenteric vessel [Recovered/Resolved]
